FAERS Safety Report 6398291-3 (Version None)
Quarter: 2009Q4

REPORT INFORMATION
  Report Type: 
  Country: None (occurrence: None)
  Receive Date: 20091013
  Receipt Date: 20090929
  Transmission Date: 20100525
  Serious: Yes (Death, Life-Threatening)
  Sender: FDA-Public Use
  Company Number: FR-CELGENEUS-056-20484-09100875

PATIENT
  Age: 88 Year
  Sex: Female
  Weight: 80 kg

DRUGS (3)
  1. INNOHEP [Suspect]
     Indication: DEEP VEIN THROMBOSIS
     Route: 058
     Dates: start: 20000113, end: 20000126
  2. COUMADIN [Suspect]
     Indication: DEEP VEIN THROMBOSIS
     Route: 048
     Dates: start: 20000119, end: 20000124
  3. FLUCONAZOLE [Concomitant]
     Indication: OROPHARYNGEAL CANDIDIASIS
     Route: 048
     Dates: start: 20000107, end: 20000126

REACTIONS (5)
  - COAGULATION TIME PROLONGED [None]
  - DRUG TOXICITY [None]
  - HEMIPLEGIA [None]
  - POTENTIATING DRUG INTERACTION [None]
  - SUBDURAL HAEMATOMA [None]
